FAERS Safety Report 9490910 (Version 1)
Quarter: 2013Q3

REPORT INFORMATION
  Report Type: Spontaneous
  Country: US (occurrence: None)
  Receive Date: 20130828
  Receipt Date: 20130828
  Transmission Date: 20140515
  Serious: No
  Sender: FDA-Public Use
  Company Number: None

PATIENT
  Age: 62 Year
  Sex: Female
  Weight: 65.77 kg

DRUGS (1)
  1. PROPOFOL [Suspect]
     Indication: COLONOSCOPY

REACTIONS (5)
  - Sneezing [None]
  - Rhinorrhoea [None]
  - Eye irritation [None]
  - Dry eye [None]
  - Excessive eye blinking [None]
